FAERS Safety Report 20885708 (Version 2)
Quarter: 2022Q2

REPORT INFORMATION
  Report Type: Spontaneous
  Country: US (occurrence: US)
  Receive Date: 20220527
  Receipt Date: 20220624
  Transmission Date: 20220721
  Serious: Yes (Hospitalization, Other)
  Sender: FDA-Public Use
  Company Number: US-GW PHARMA-2022-US-017655

PATIENT
  Sex: Male

DRUGS (4)
  1. EPIDIOLEX [Suspect]
     Active Substance: CANNABIDIOL
     Indication: Severe myoclonic epilepsy of infancy
     Dosage: 1.5 MILLILITER, BID
     Route: 065
     Dates: start: 202201
  2. EPIDIOLEX [Suspect]
     Active Substance: CANNABIDIOL
     Dosage: 150 MILLIGRAM, BID
     Route: 048
     Dates: start: 202201
  3. VALPROIC ACID [Suspect]
     Active Substance: VALPROIC ACID
     Indication: Product used for unknown indication
     Dosage: 150 MILLIGRAM, TID
     Route: 048
     Dates: end: 20220521
  4. KEPPRA XR [Concomitant]
     Active Substance: LEVETIRACETAM
     Dosage: 200 MILLIGRAM, BID
     Route: 048

REACTIONS (5)
  - Fatigue [Recovering/Resolving]
  - Oedema [Recovering/Resolving]
  - Leukopenia [Recovering/Resolving]
  - Thrombocytopenia [Recovering/Resolving]
  - Hypoalbuminaemia [Recovering/Resolving]
